FAERS Safety Report 6679190-6 (Version None)
Quarter: 2010Q2

REPORT INFORMATION
  Report Type: 
  Country: None (occurrence: None)
  Receive Date: 20100409
  Receipt Date: 20100330
  Transmission Date: 20101027
  Serious: Yes (Death, Hospitalization)
  Sender: FDA-Public Use
  Company Number: 124133

PATIENT
  Age: 86 Year
  Sex: Male
  Weight: 63.8 kg

DRUGS (28)
  1. CYTARABINE [Suspect]
     Indication: ACUTE MYELOID LEUKAEMIA
     Dosage: 33.2 MG, 1 DAY, SUBCUTANEOUS ; 33.2 MG, 1 DAY ; 34 MG, 1 DAY, SUBCUTANEOUS
     Route: 058
     Dates: start: 20081121, end: 20081128
  2. CYTARABINE [Suspect]
     Indication: ACUTE MYELOID LEUKAEMIA
     Dosage: 33.2 MG, 1 DAY, SUBCUTANEOUS ; 33.2 MG, 1 DAY ; 34 MG, 1 DAY, SUBCUTANEOUS
     Route: 058
     Dates: start: 20081231, end: 20090103
  3. CYTARABINE [Suspect]
     Indication: ACUTE MYELOID LEUKAEMIA
     Dosage: 33.2 MG, 1 DAY, SUBCUTANEOUS ; 33.2 MG, 1 DAY ; 34 MG, 1 DAY, SUBCUTANEOUS
     Route: 058
     Dates: start: 20081211
  4. (REGROW /01488101/) [Concomitant]
  5. (PLATYCODON GRANDIFLORUS) [Concomitant]
  6. NERISONE [Concomitant]
  7. LORAZEPAM [Concomitant]
  8. (ALLERMIN /00072502/) [Concomitant]
  9. DECADRON [Concomitant]
  10. AMLODIPINE [Concomitant]
  11. (PRIMPERAN /00041901/) [Concomitant]
  12. LACTULOSE [Concomitant]
  13. ZOLPIDEM [Concomitant]
  14. TRIAMCINOLONE ACETONIDE [Concomitant]
  15. (BENAZON) [Concomitant]
  16. (BORRAGINOL A) [Concomitant]
  17. ACETYLCYSTEINE [Concomitant]
  18. LEVOFLOXACIN [Concomitant]
  19. (MAGNESIUM) [Concomitant]
  20. (SENNA ALEXANDRINA) [Concomitant]
  21. COMBIVENT [Concomitant]
  22. (TRANSAMIN) [Concomitant]
  23. CEFTAZIDIME [Concomitant]
  24. TIGECYCLINE [Concomitant]
  25. MEGESTROL ACETATE [Concomitant]
  26. TRAMADOL HYDROCHLORIDE [Concomitant]
  27. DIOVAN HCT [Concomitant]
  28. METOCLOPRAMIDE HYDROCHLORIDE [Concomitant]

REACTIONS (22)
  - AORTIC CALCIFICATION [None]
  - AORTIC DISORDER [None]
  - BLOOD GLUCOSE INCREASED [None]
  - BRADYCARDIA [None]
  - CARDIAC FAILURE [None]
  - CARDIOMEGALY [None]
  - CELLULITIS [None]
  - DEPRESSED LEVEL OF CONSCIOUSNESS [None]
  - EMPHYSEMA [None]
  - EXOSTOSIS [None]
  - FEBRILE NEUTROPENIA [None]
  - GENERALISED OEDEMA [None]
  - HAEMATOCRIT DECREASED [None]
  - HAEMOGLOBIN DECREASED [None]
  - PLATELET COUNT DECREASED [None]
  - PLEURAL EFFUSION [None]
  - PLEURAL FIBROSIS [None]
  - PNEUMONIA [None]
  - REFUSAL OF TREATMENT BY RELATIVE [None]
  - RENAL FAILURE ACUTE [None]
  - SEPTIC SHOCK [None]
  - WEIGHT INCREASED [None]
